FAERS Safety Report 11167549 (Version 4)
Quarter: 2015Q4

REPORT INFORMATION
  Report Type: Spontaneous
  Country: US (occurrence: US)
  Receive Date: 20150605
  Receipt Date: 20151006
  Transmission Date: 20160304
  Serious: Yes (Death, Hospitalization, Other)
  Sender: FDA-Public Use
  Company Number: US-ASTRAZENECA-2013SE86253

PATIENT
  Age: 664 Month
  Sex: Male
  Weight: 111 kg

DRUGS (37)
  1. BYETTA [Suspect]
     Active Substance: EXENATIDE
     Indication: TYPE 2 DIABETES MELLITUS
     Dosage: 5MCG/0.02
     Route: 065
     Dates: start: 20100404
  2. ZETIA [Concomitant]
     Active Substance: EZETIMIBE
     Dates: start: 20070621
  3. CIALIS [Concomitant]
     Active Substance: TADALAFIL
     Dates: start: 20090127
  4. LOVASTATIN. [Concomitant]
     Active Substance: LOVASTATIN
     Dates: start: 20091014
  5. MIRTAZAPINE. [Concomitant]
     Active Substance: MIRTAZAPINE
     Dates: start: 20111212
  6. LORAZEPAM. [Concomitant]
     Active Substance: LORAZEPAM
     Dates: start: 20111222
  7. GLIMEPIRIDE. [Concomitant]
     Active Substance: GLIMEPIRIDE
     Route: 048
     Dates: start: 20111123
  8. ZOCOR [Concomitant]
     Active Substance: SIMVASTATIN
     Route: 048
     Dates: start: 20111123
  9. VARDENAFIL [Concomitant]
     Active Substance: VARDENAFIL
     Route: 048
     Dates: start: 20111123
  10. TYLENOL [Concomitant]
     Active Substance: ACETAMINOPHEN
     Route: 048
     Dates: start: 20111127
  11. MERIDIA [Concomitant]
     Active Substance: SIBUTRAMINE HYDROCHLORIDE
     Dates: start: 20061031
  12. LEVEMIR [Concomitant]
     Active Substance: INSULIN DETEMIR
     Dates: start: 20120220
  13. ATROPINE SULFATE. [Concomitant]
     Active Substance: ATROPINE SULFATE
     Dates: start: 20120412
  14. LISINOPRIL. [Concomitant]
     Active Substance: LISINOPRIL
     Route: 048
     Dates: start: 20060725
  15. OXYCONTIN [Concomitant]
     Active Substance: OXYCODONE HYDROCHLORIDE
     Route: 048
     Dates: start: 20111122
  16. TRICOR [Concomitant]
     Active Substance: FENOFIBRATE
     Dates: start: 20071012
  17. BYETTA [Suspect]
     Active Substance: EXENATIDE
     Indication: TYPE 2 DIABETES MELLITUS
     Route: 065
     Dates: start: 201003, end: 201110
  18. BYETTA [Suspect]
     Active Substance: EXENATIDE
     Indication: TYPE 2 DIABETES MELLITUS
     Dosage: 5MCG/0.02
     Route: 065
     Dates: start: 20110414
  19. COLACE [Concomitant]
     Active Substance: DOCUSATE SODIUM
     Route: 048
     Dates: start: 20111127
  20. AVANDIA [Concomitant]
     Active Substance: ROSIGLITAZONE MALEATE
     Dates: start: 20060723
  21. DESOXIMETASONE. [Concomitant]
     Active Substance: DESOXIMETASONE
     Dates: start: 20080704
  22. ONDANSETRON HYDROCHLORIDE. [Concomitant]
     Active Substance: ONDANSETRON HYDROCHLORIDE
     Dates: start: 20111226
  23. DRONABINOL. [Concomitant]
     Active Substance: DRONABINOL
     Dates: start: 20120103
  24. METRONIDAZOLE. [Concomitant]
     Active Substance: METRONIDAZOLE
     Dates: start: 20120402
  25. METFORMIN HYDROCHLORIDE. [Concomitant]
     Active Substance: METFORMIN HYDROCHLORIDE
     Dates: start: 20060723
  26. AVANDAMET [Concomitant]
     Active Substance: METFORMIN HYDROCHLORIDE\ROSIGLITAZONE MALEATE
     Dosage: 4-1000MG
     Dates: start: 20070619
  27. NIASPAN [Concomitant]
     Active Substance: NIACIN
     Dates: start: 20090408
  28. CREON [Concomitant]
     Active Substance: PANCRELIPASE AMYLASE\PANCRELIPASE LIPASE\PANCRELIPASE PROTEASE
     Dosage: 12K-38K-60
     Dates: start: 20111212
  29. MORPHINE SULFATE. [Concomitant]
     Active Substance: MORPHINE SULFATE
     Dosage: 100 MG/5ML
     Dates: start: 20120406
  30. AMBIEN [Concomitant]
     Active Substance: ZOLPIDEM TARTRATE
     Route: 048
     Dates: start: 20111127
  31. FOLIC ACID. [Concomitant]
     Active Substance: FOLIC ACID
     Dates: start: 20090408
  32. NEPHROCAPS [Concomitant]
     Active Substance: ASCORBIC ACID\BIOTIN\CYANOCOBALAMIN\FOLIC ACID\NIACIN\PANTOTHENIC ACID\PYRIDOXINE\RIBOFLAVIN\THIAMINE
     Dosage: ONE TABLET ONCE A DAY
     Route: 048
     Dates: start: 20111123
  33. ADVICOR [Concomitant]
     Active Substance: LOVASTATIN\NIACIN
     Dosage: 1000-20MG
     Dates: start: 20060725
  34. SINGULAIR [Concomitant]
     Active Substance: MONTELUKAST SODIUM
     Dates: start: 20070319
  35. PROCHLORPERAZINE MALEATE. [Concomitant]
     Active Substance: PROCHLORPERAZINE MALEATE
     Dates: start: 20120103
  36. METOCLOPRAMIDE HCL [Concomitant]
     Active Substance: METOCLOPRAMIDE HYDROCHLORIDE
     Dates: start: 20120307
  37. ENOXAPARIN SODIUM. [Concomitant]
     Active Substance: ENOXAPARIN SODIUM
     Dosage: 100 MG/ML
     Dates: start: 20120402

REACTIONS (5)
  - Pancreatitis [Unknown]
  - Pancreatic carcinoma metastatic [Fatal]
  - Metastases to liver [Unknown]
  - Jaundice cholestatic [Unknown]
  - Bile duct obstruction [Unknown]

NARRATIVE: CASE EVENT DATE: 201111
